FAERS Safety Report 10173814 (Version 2)
Quarter: 2014Q2

REPORT INFORMATION
  Report Type: Spontaneous
  Country: JP (occurrence: JP)
  Receive Date: 20140515
  Receipt Date: 20140613
  Transmission Date: 20141212
  Serious: Yes (Death)
  Sender: FDA-Public Use
  Company Number: JP-BAXTER-2014BAX023604

PATIENT
  Sex: Male

DRUGS (2)
  1. DIANEAL-N PD-4 1.5 PD SOLUTION [Suspect]
     Indication: RENAL FAILURE CHRONIC
     Route: 033
     Dates: start: 20080728, end: 20140502
  2. DIANEAL-N PD-4 1.5 PD SOLUTION [Suspect]
     Route: 033
     Dates: start: 20080728, end: 20140502

REACTIONS (1)
  - Marasmus [Fatal]
